FAERS Safety Report 5550505-5 (Version None)
Quarter: 2007Q4

REPORT INFORMATION
  Report Type: 
  Country: None (occurrence: None)
  Receive Date: 20071210
  Receipt Date: 20071126
  Transmission Date: 20080405
  Serious: Yes (Death, Hospitalization, Other)
  Sender: FDA-Public Use
  Company Number: 43256

PATIENT
  Age: 67 Year
  Sex: Male

DRUGS (1)
  1. CYCLOSPORINE [Suspect]
     Indication: LIVER TRANSPLANT

REACTIONS (8)
  - GRAFT VERSUS HOST DISEASE [None]
  - KAPOSI'S SARCOMA [None]
  - MENINGITIS [None]
  - NOSOCOMIAL INFECTION [None]
  - PNEUMONIA [None]
  - PSEUDOMEMBRANOUS COLITIS [None]
  - RESPIRATORY FAILURE [None]
  - SEPSIS [None]
